FAERS Safety Report 24752675 (Version 1)
Quarter: 2024Q4

REPORT INFORMATION
  Report Type: Spontaneous
  Country: US (occurrence: US)
  Receive Date: 20241219
  Receipt Date: 20241219
  Transmission Date: 20250114
  Serious: No
  Sender: PACIRA
  Company Number: US-ORG100016242-2024000311

PATIENT

DRUGS (2)
  1. EXPAREL [Suspect]
     Active Substance: BUPIVACAINE
     Indication: Nerve block
     Dosage: NOT PROVIDED
     Route: 065
  2. LIDOCAINE [Suspect]
     Active Substance: LIDOCAINE
     Indication: Product used for unknown indication
     Dosage: NOT PROVIDED
     Route: 058

REACTIONS (2)
  - Adverse event [Unknown]
  - Labelled drug-drug interaction medication error [Unknown]
